FAERS Safety Report 8114098-0 (Version None)
Quarter: 2012Q1

REPORT INFORMATION
  Report Type: 
  Country: None (occurrence: None)
  Receive Date: 20120203
  Receipt Date: 20120127
  Transmission Date: 20120608
  Serious: Yes (Hospitalization)
  Sender: FDA-Public Use
  Company Number: NL-ASTRAZENECA-2012SE05708

PATIENT
  Age: 59 Year
  Sex: Male
  Weight: 103 kg

DRUGS (1)
  1. CRESTOR [Suspect]
     Indication: BLOOD CHOLESTEROL ABNORMAL
     Route: 048
     Dates: start: 20110801

REACTIONS (6)
  - TREMOR [None]
  - DISTURBANCE IN ATTENTION [None]
  - BONE PAIN [None]
  - MYALGIA [None]
  - CHEST DISCOMFORT [None]
  - FATIGUE [None]
